FAERS Safety Report 23317904 (Version 1)
Quarter: 2023Q4

REPORT INFORMATION
  Report Type: Spontaneous
  Country: CA (occurrence: CA)
  Receive Date: 20231219
  Receipt Date: 20231219
  Transmission Date: 20240110
  Serious: Yes (Hospitalization)
  Sender: FDA-Public Use
  Company Number: CA-JNJFOC-20231234112

PATIENT
  Sex: Male

DRUGS (1)
  1. IMBRUVICA [Suspect]
     Active Substance: IBRUTINIB
     Indication: Leukaemia
     Route: 048

REACTIONS (6)
  - Lymphocytic leukaemia [Unknown]
  - Off label use [Unknown]
  - Drug therapy [Unknown]
  - Product administration error [Unknown]
  - Off label use [Unknown]
  - Dysphagia [Unknown]
